FAERS Safety Report 13632387 (Version 1)
Quarter: 2017Q2

REPORT INFORMATION
  Report Type: Report from Study
  Country: None (occurrence: US)
  Receive Date: 20170608
  Receipt Date: 20170608
  Transmission Date: 20170830
  Serious: Yes (Other)
  Sender: FDA-Public Use
  Company Number: US-ABBVIE-17K-163-1998053-00

PATIENT
  Age: 55 Year
  Sex: Male

DRUGS (1)
  1. HUMIRA [Suspect]
     Active Substance: ADALIMUMAB
     Indication: PRODUCT USED FOR UNKNOWN INDICATION
     Route: 058

REACTIONS (8)
  - Fatigue [Unknown]
  - Skin haemorrhage [Unknown]
  - Arthralgia [Unknown]
  - Loss of consciousness [Unknown]
  - Skin atrophy [Unknown]
  - Fall [Unknown]
  - Muscular weakness [Unknown]
  - Lethargy [Unknown]

NARRATIVE: CASE EVENT DATE: 2017
